FAERS Safety Report 14400384 (Version 2)
Quarter: 2018Q1

REPORT INFORMATION
  Report Type: Spontaneous
  Country: US (occurrence: US)
  Receive Date: 20180117
  Receipt Date: 20180209
  Transmission Date: 20180509
  Serious: Yes (Other)
  Sender: FDA-Public Use
  Company Number: US-JNJFOC-20171202344

PATIENT
  Age: 56 Year
  Sex: Female

DRUGS (2)
  1. XARELTO [Suspect]
     Active Substance: RIVAROXABAN
     Indication: THROMBOSIS PROPHYLAXIS
     Dosage: IN VARYING DOSES OF 15 MG AND 20 MG
     Route: 048
     Dates: start: 20130524, end: 20150129
  2. XARELTO [Suspect]
     Active Substance: RIVAROXABAN
     Indication: THROMBOSIS
     Dosage: IN VARYING DOSES OF 15 MG AND 20 MG
     Route: 048
     Dates: start: 20130524, end: 20150129

REACTIONS (2)
  - Rectal haemorrhage [Unknown]
  - Internal haemorrhage [Unknown]

NARRATIVE: CASE EVENT DATE: 201501
